FAERS Safety Report 7182963-7 (Version None)
Quarter: 2010Q4

REPORT INFORMATION
  Report Type: 
  Country: None (occurrence: None)
  Receive Date: 20101209
  Receipt Date: 20101123
  Transmission Date: 20110411
  Serious: Yes (Other)
  Sender: FDA-Public Use
  Company Number: 2010AP002320

PATIENT
  Age: 55 Year
  Sex: Male

DRUGS (4)
  1. PERINDOPRIL ERBUMINE (PERINDOPRIL ERBUMINE) [Suspect]
     Indication: HYPERTENSION
  2. ETORICOXIB (ETORICOXIB) [Suspect]
     Indication: PERIARTHRITIS
  3. LANSOPRAZOLE [Concomitant]
  4. HYDROCHLOROTHIAZIDE [Concomitant]

REACTIONS (3)
  - CONDITION AGGRAVATED [None]
  - DRUG INTERACTION [None]
  - HYPERTENSION [None]
